FAERS Safety Report 9341617 (Version 1)
Quarter: 2013Q2

REPORT INFORMATION
  Report Type: Spontaneous
  Country: IT (occurrence: None)
  Receive Date: 20130606
  Receipt Date: 20130606
  Transmission Date: 20140414
  Serious: Yes (Hospitalization)
  Sender: FDA-Public Use
  Company Number: IT-011872

PATIENT
  Age: 43 Year
  Sex: Female

DRUGS (4)
  1. CR/06856401 [Suspect]
     Indication: CUSHING^S SYNDROME
     Dosage: 100 PG TOTAL
     Dates: start: 20130208, end: 20130208
  2. RAMIPRIL [Concomitant]
  3. TAVOR /00273201/ [Concomitant]
  4. INDERAL [Concomitant]

REACTIONS (2)
  - Urticaria [None]
  - Angioedema [None]
